FAERS Safety Report 21996150 (Version 2)
Quarter: 2023Q1

REPORT INFORMATION
  Report Type: Report from Study
  Country: AT (occurrence: AT)
  Receive Date: 20230215
  Receipt Date: 20230215
  Transmission Date: 20230418
  Serious: Yes (Hospitalization, Other)
  Sender: FDA-Public Use
  Company Number: AT-PFM-2022-03779

PATIENT
  Age: 40 Year
  Sex: Female
  Weight: 79 kg

DRUGS (29)
  1. BRAFTOVI [Suspect]
     Active Substance: ENCORAFENIB
     Indication: Colorectal cancer
     Dosage: 200 MG PER DAY
     Route: 048
     Dates: start: 20210728, end: 20211210
  2. CETUXIMAB [Suspect]
     Active Substance: CETUXIMAB
     Indication: Colorectal cancer
     Dosage: 250 MG/M2, WEEKLY (LIQUID)
     Route: 042
     Dates: start: 20210723, end: 20211210
  3. ACETAMINOPHEN\CAFFEINE\PROPYPHENAZONE [Concomitant]
     Active Substance: ACETAMINOPHEN\CAFFEINE\PROPYPHENAZONE
     Indication: Pain
     Dosage: 1 G, PRN (AS NEEDED)
     Route: 042
     Dates: start: 202112
  4. ORAL IMPACT [Concomitant]
     Indication: Nutritional supplementation
     Dosage: 237 ML, TID (3/DAY)
     Route: 048
     Dates: start: 202112
  5. MORAPID [Concomitant]
     Indication: Pain
     Dosage: 10 MG, PRN (AS NEEDED)
     Route: 048
     Dates: start: 202112
  6. AMITRIPTYLINE [Concomitant]
     Active Substance: AMITRIPTYLINE
     Indication: Antidepressant therapy
     Dosage: 25 MG, DAILY
     Route: 048
     Dates: start: 202112
  7. POLYETHYLENE GLYCOL 3350\POTASSIUM CHLORIDE\SODIUM BICARBONATE\SODIUM [Concomitant]
     Active Substance: POLYETHYLENE GLYCOL 3350\POTASSIUM CHLORIDE\SODIUM BICARBONATE\SODIUM CHLORIDE
     Indication: Prophylaxis
     Dosage: 1 BAG PRN (AS NEEDED)
     Route: 048
     Dates: start: 20220109, end: 20220119
  8. HYDROMORPHONE [Concomitant]
     Active Substance: HYDROMORPHONE
     Indication: Pain
     Dosage: 2 MG, BID (2/DAY)
     Route: 048
     Dates: start: 20220109, end: 20220111
  9. HYDROMORPHONE [Concomitant]
     Active Substance: HYDROMORPHONE
     Dosage: 1.3 MG, DAILY
     Route: 048
     Dates: start: 20220109, end: 20220112
  10. HYDROMORPHONE [Concomitant]
     Active Substance: HYDROMORPHONE
     Dosage: 1.3 MG, DAILY
     Route: 048
     Dates: start: 20220112, end: 20220114
  11. ZOFRAN [Concomitant]
     Active Substance: ONDANSETRON HYDROCHLORIDE
     Indication: Prophylaxis
     Dosage: 8 MG, PRN (AS NEEDED)
     Route: 042
     Dates: start: 20220112, end: 20220119
  12. PASSEDAN [Concomitant]
     Indication: Anxiety
     Dosage: 20 GGT PRN (AS NEEDED)
     Route: 048
     Dates: start: 20220112, end: 20220119
  13. DIPHENHYDRAMINE [Concomitant]
     Active Substance: DIPHENHYDRAMINE
     Indication: Prophylaxis
     Dosage: 60 MG PER CYCLE
     Route: 042
     Dates: start: 20210723, end: 20210923
  14. DIPHENHYDRAMINE [Concomitant]
     Active Substance: DIPHENHYDRAMINE
     Dosage: 30 MG PER CYCLE
     Route: 042
     Dates: start: 20210930, end: 20211104
  15. DIPHENHYDRAMINE [Concomitant]
     Active Substance: DIPHENHYDRAMINE
     Dosage: 60 MG PER CYCLE
     Route: 042
     Dates: start: 20211111, end: 20211111
  16. DIPHENHYDRAMINE [Concomitant]
     Active Substance: DIPHENHYDRAMINE
     Dosage: 30 MG PER CYCLE
     Route: 042
     Dates: start: 20211118, end: 20211125
  17. DIPHENHYDRAMINE [Concomitant]
     Active Substance: DIPHENHYDRAMINE
     Dosage: 60 MG PER CYCLE
     Route: 042
     Dates: start: 20211202, end: 20211210
  18. DEXAMETHASONE [Concomitant]
     Active Substance: DEXAMETHASONE
     Indication: Prophylaxis
     Dosage: 20 MG PER CYCLE
     Route: 042
     Dates: start: 20210723, end: 20210723
  19. DEXAMETHASONE [Concomitant]
     Active Substance: DEXAMETHASONE
     Dosage: 12 MG PER CYCLE
     Route: 042
     Dates: start: 20210806, end: 20210923
  20. DEXAMETHASONE [Concomitant]
     Active Substance: DEXAMETHASONE
     Dosage: 8 MG PER CYCLE
     Route: 042
     Dates: start: 20210930, end: 20211104
  21. DEXAMETHASONE [Concomitant]
     Active Substance: DEXAMETHASONE
     Dosage: 12 MG PER CYCLE
     Route: 042
     Dates: start: 20211111, end: 20211111
  22. DEXAMETHASONE [Concomitant]
     Active Substance: DEXAMETHASONE
     Dosage: 8 MG PER CYCLE
     Route: 042
     Dates: start: 20211118, end: 20211125
  23. DEXAMETHASONE [Concomitant]
     Active Substance: DEXAMETHASONE
     Dosage: 12 MG PER CYCLE
     Route: 042
     Dates: start: 20211202, end: 20211210
  24. LOPERAMIDE HYDROCHLORIDE [Concomitant]
     Active Substance: LOPERAMIDE HYDROCHLORIDE
     Indication: Prophylaxis
     Dosage: 2 MG, PRN (AS NEEDED)
     Route: 048
  25. PANTOPRAZOLE SODIUM [Concomitant]
     Active Substance: PANTOPRAZOLE SODIUM
     Indication: Prophylaxis
     Dosage: 40 MG, DAILY
     Route: 048
  26. PERFALGAN [Concomitant]
     Active Substance: ACETAMINOPHEN
     Indication: Pain
     Dosage: 1 G, PRN (AS NEEDED)
     Route: 042
     Dates: start: 202112
  27. ACETAMINOPHEN [Concomitant]
     Active Substance: ACETAMINOPHEN
     Indication: Prophylaxis
     Dosage: 500 MG, PRN (AS NEEDED)
     Route: 048
  28. METOCLOPRAMIDE HYDROCHLORIDE [Concomitant]
     Active Substance: METOCLOPRAMIDE HYDROCHLORIDE
     Indication: Prophylaxis
     Dosage: 10 MG,  (AS NEEDED)
     Route: 048
  29. FRAGMIN [Concomitant]
     Active Substance: DALTEPARIN SODIUM
     Indication: Prophylaxis
     Dosage: 7500 IU, BID (2/DAY)
     Route: 058
     Dates: start: 202112

REACTIONS (7)
  - Renal failure [Unknown]
  - Pneumonia [Recovered/Resolved]
  - Venous thrombosis [Recovering/Resolving]
  - Prescribed underdose [Unknown]
  - Overdose [Unknown]
  - Medication error [Unknown]
  - Off label use [Unknown]

NARRATIVE: CASE EVENT DATE: 20210728
